FAERS Safety Report 15704096 (Version 1)
Quarter: 2018Q4

REPORT INFORMATION
  Report Type: Spontaneous
  Country: CH (occurrence: CH)
  Receive Date: 20181210
  Receipt Date: 20181210
  Transmission Date: 20190205
  Serious: Yes (Other)
  Sender: FDA-Public Use
  Company Number: PHHY2018CH167813

PATIENT
  Age: 90 Year
  Sex: Female
  Weight: 68 kg

DRUGS (13)
  1. ACIDUM FOLICUM STREULI [Concomitant]
     Active Substance: FOLIC ACID
     Indication: PRODUCT USED FOR UNKNOWN INDICATION
     Dosage: 5 MG, QD
     Route: 048
  2. SODIUM BICARBONATE. [Concomitant]
     Active Substance: SODIUM BICARBONATE
     Indication: METABOLIC ACIDOSIS
     Dosage: UNK
     Route: 065
  3. DAFALGAN [Concomitant]
     Active Substance: ACETAMINOPHEN
     Indication: PRODUCT USED FOR UNKNOWN INDICATION
     Dosage: MAXIMUM 4 UNITS/DAY ; AS NECESSARY
     Route: 065
  4. SPIRICORT [Concomitant]
     Active Substance: PREDNISOLONE
     Indication: PRODUCT USED FOR UNKNOWN INDICATION
     Dosage: 40 MG, QD WITH TAPERING (CURRENT DOSE 20 MG/DAY).
     Route: 048
     Dates: start: 20181025
  5. NEBILET [Concomitant]
     Active Substance: NEBIVOLOL
     Indication: PRODUCT USED FOR UNKNOWN INDICATION
     Dosage: 7.5 MG, QD
     Route: 048
  6. TORASEMID SANDOZ [Concomitant]
     Active Substance: TORSEMIDE
     Indication: PRODUCT USED FOR UNKNOWN INDICATION
     Dosage: PAUSED 22-OCT TO 06-NOV-2018, FROM 07-NOV-2018 10 MG/DAY
     Route: 048
  7. METFORMIN [Concomitant]
     Active Substance: METFORMIN HYDROCHLORIDE
     Indication: DIABETES MELLITUS
     Dosage: TERMINATION DUE TO RENAL INSUFFICIENCY. REPLACED BY JANUVIA.
     Route: 048
     Dates: end: 20181022
  8. MARCOUMAR [Concomitant]
     Active Substance: PHENPROCOUMON
     Dosage: PAUSE VOM 22.10.BIS 06.11.2018
     Route: 065
     Dates: start: 20181107
  9. MARCOUMAR [Concomitant]
     Active Substance: PHENPROCOUMON
     Indication: PRODUCT USED FOR UNKNOWN INDICATION
     Dosage: UNK
     Route: 048
  10. MARCOUMAR [Concomitant]
     Active Substance: PHENPROCOUMON
     Dosage: PAUSE VOM 22.10.BIS 06.11.2018
     Route: 065
     Dates: end: 20181022
  11. CIPROFLOXACIN. [Suspect]
     Active Substance: CIPROFLOXACIN
     Indication: PRODUCT USED FOR UNKNOWN INDICATION
     Dosage: 750 MG, Q12H
     Route: 048
     Dates: start: 20181007, end: 20181022
  12. CLINDAMYCIN. [Suspect]
     Active Substance: CLINDAMYCIN
     Indication: PRODUCT USED FOR UNKNOWN INDICATION
     Dosage: 300 MG, Q8H
     Route: 048
     Dates: start: 20181007, end: 20181022
  13. DIGOXIN. [Concomitant]
     Active Substance: DIGOXIN
     Indication: PRODUCT USED FOR UNKNOWN INDICATION
     Dosage: TERMINATION DUE TO RENAL INSUFFICIENCY
     Route: 048
     Dates: end: 20181022

REACTIONS (3)
  - Overdose [Recovered/Resolved]
  - Renal failure [Recovering/Resolving]
  - Tubulointerstitial nephritis [Recovering/Resolving]

NARRATIVE: CASE EVENT DATE: 20181007
